FAERS Safety Report 25014156 (Version 2)
Quarter: 2025Q3

REPORT INFORMATION
  Report Type: Spontaneous
  Country: US (occurrence: US)
  Receive Date: 20250226
  Receipt Date: 20250904
  Transmission Date: 20251021
  Serious: Yes (Other)
  Sender: PFIZER
  Company Number: US-PFIZER INC-PV202500022892

PATIENT
  Age: 78 Year
  Sex: Female

DRUGS (1)
  1. NURTEC ODT [Suspect]
     Active Substance: RIMEGEPANT SULFATE
     Dosage: 75 MG, ALTERNATE DAY (DISSOLVE ONE TABLET UNDER TONGUE EVERY OTHER DAY)
     Route: 048
     Dates: start: 2024

REACTIONS (2)
  - Neoplasm malignant [Unknown]
  - Cataract [Unknown]
